FAERS Safety Report 4621444-9 (Version None)
Quarter: 2005Q1

REPORT INFORMATION
  Report Type: 
  Country: None (occurrence: None)
  Receive Date: 20050325
  Receipt Date: 20050309
  Transmission Date: 20050727
  Serious: Yes (Hospitalization)
  Sender: FDA-Public Use
  Company Number: 53999/31

PATIENT
  Age: 43 Year
  Sex: Male

DRUGS (20)
  1. FLUCONAZOLE [Suspect]
     Indication: CARDIAC DISORDER
     Dosage: 200 MG,
  2. FLUCONAZOLE [Suspect]
     Indication: HAEMORRHAGE
     Dosage: 200 MG,
  3. FLUCONAZOLE [Suspect]
     Indication: PYREXIA
     Dosage: 200 MG,
  4. FLUCONAZOLE [Suspect]
     Indication: VARICOSE VEIN
     Dosage: 200 MG,
  5. METHADONE HCL [Suspect]
     Indication: HIV INFECTION
     Dosage: 120MG/110MG,
  6. NELFINAVIR [Suspect]
     Indication: HIV INFECTION
     Dosage: 250 MG,
  7. LAMIVUDINE [Suspect]
     Indication: HIV INFECTION
     Dosage: 300 MG,
  8. STAVUDINE [Suspect]
     Indication: HIV INFECTION
     Dosage: 80 MG,
  9. PROPRANOLOL [Concomitant]
  10. ENALAPRIL [Concomitant]
  11. FUROSEMIDE [Concomitant]
  12. HYDROCHLOROTHIAZIDE AND POTASSIUM-SPARING AGENTS [Concomitant]
  13. OMEPRAZOLE [Concomitant]
  14. ALLOPURINOL [Concomitant]
  15. VITAMIN K [Concomitant]
  16. LACTULOSE [Concomitant]
  17. CALCIUM LEVOFOLINATE [Concomitant]
  18. IRON TRIVALENT, ORAL PREPARATIONS [Concomitant]
  19. PAROMOMYCIN [Concomitant]
  20. CEFTRIAXONE [Concomitant]

REACTIONS (21)
  - ARTERIOSCLEROSIS [None]
  - DILATATION ATRIAL [None]
  - DRUG INTERACTION [None]
  - ELECTROCARDIOGRAM QT CORRECTED INTERVAL PROLONGED [None]
  - ELECTROCARDIOGRAM QT PROLONGED [None]
  - HYPERBILIRUBINAEMIA [None]
  - HYPERCREATININAEMIA [None]
  - HYPERTENSIVE HEART DISEASE [None]
  - HYPERURICAEMIA [None]
  - HYPOALBUMINAEMIA [None]
  - HYPOCHOLESTEROLAEMIA [None]
  - HYPOGLYCAEMIA [None]
  - LOSS OF CONSCIOUSNESS [None]
  - MITRAL VALVE INCOMPETENCE [None]
  - PANCYTOPENIA [None]
  - PERICARDIAL DISEASE [None]
  - TORSADE DE POINTES [None]
  - VENTRICULAR ARRHYTHMIA [None]
  - VENTRICULAR EXTRASYSTOLES [None]
  - VENTRICULAR TACHYCARDIA [None]
  - VERTIGO [None]
